FAERS Safety Report 9062534 (Version 1)
Quarter: 2013Q1

REPORT INFORMATION
  Report Type: Spontaneous
  Country: US (occurrence: US)
  Receive Date: 20130111
  Receipt Date: 20130111
  Transmission Date: 20140127
  Serious: No
  Sender: FDA-Public Use
  Company Number: US-VIIV HEALTHCARE LIMITED-A0987831A

PATIENT
  Sex: Male

DRUGS (3)
  1. COMBIVIR [Suspect]
     Indication: HIV INFECTION
     Route: 065
  2. COMPLERA [Suspect]
     Indication: HIV INFECTION
     Dates: start: 20120712, end: 20120719
  3. INTELENCE [Concomitant]

REACTIONS (6)
  - Skin discolouration [Recovering/Resolving]
  - Gait disturbance [Recovering/Resolving]
  - Confusional state [Recovering/Resolving]
  - Anger [Recovering/Resolving]
  - Fatigue [Recovering/Resolving]
  - Asthenia [Recovering/Resolving]
